FAERS Safety Report 22095588 (Version 1)
Quarter: 2023Q1

REPORT INFORMATION
  Report Type: Spontaneous
  Country: CN (occurrence: CN)
  Receive Date: 20230314
  Receipt Date: 20230314
  Transmission Date: 20230418
  Serious: Yes (Hospitalization)
  Sender: FDA-Public Use
  Company Number: CN-PFIZER INC-PV202300044594

PATIENT
  Age: 47 Year
  Sex: Female
  Weight: 70 kg

DRUGS (2)
  1. EPIRUBICIN [Suspect]
     Active Substance: EPIRUBICIN
     Indication: Neoplasm
     Dosage: 140 MG, 1X/DAY
     Route: 041
     Dates: start: 20230129, end: 20230129
  2. CYCLOPHOSPHAMIDE [Suspect]
     Active Substance: CYCLOPHOSPHAMIDE
     Indication: Neoplasm
     Dosage: 1.05 G, 1X/DAY
     Route: 041
     Dates: start: 20230129, end: 20230129

REACTIONS (1)
  - Drug-induced liver injury [Recovering/Resolving]

NARRATIVE: CASE EVENT DATE: 20230220
